FAERS Safety Report 21305413 (Version 1)
Quarter: 2022Q3

REPORT INFORMATION
  Report Type: Spontaneous
  Country: FR (occurrence: FR)
  Receive Date: 20220908
  Receipt Date: 20220908
  Transmission Date: 20221027
  Serious: Yes (Life-Threatening, Hospitalization, Other)
  Sender: FDA-Public Use
  Company Number: FR-AFSSAPS-CN20221428

PATIENT
  Age: 64 Year
  Sex: Male
  Weight: 70 kg

DRUGS (21)
  1. METRONIDAZOLE [Suspect]
     Active Substance: METRONIDAZOLE
     Indication: Splenic infarction
     Dosage: 1500 MILLIGRAM,(500 MG 3/JOUR) ONCE A DAY
     Route: 042
     Dates: start: 20220701, end: 20220704
  2. AMIKACIN [Suspect]
     Active Substance: AMIKACIN
     Indication: Product used for unknown indication
     Dosage: 2000 MILLIGRAM, ONCE A DAY
     Route: 042
     Dates: start: 20220701, end: 20220702
  3. AMIKACIN [Suspect]
     Active Substance: AMIKACIN
     Dosage: 1000 MILLIGRAM
     Route: 042
     Dates: start: 20220704, end: 20220704
  4. AMIKACIN [Suspect]
     Active Substance: AMIKACIN
     Dosage: 1500 MILLIGRAM
     Route: 042
     Dates: start: 20220705, end: 20220706
  5. CELLCEPT [Suspect]
     Active Substance: MYCOPHENOLATE MOFETIL
     Indication: Prophylaxis against transplant rejection
     Dosage: 1000 MILLIGRAM, (500 MG2/JOUR 8H 20 H)ONCE A DAY
     Route: 048
     Dates: start: 20220526, end: 20220627
  6. FLUCONAZOLE [Suspect]
     Active Substance: FLUCONAZOLE
     Indication: Product used for unknown indication
     Dosage: 200 MILLIGRAM,(? 8H) ONCE A DAY
     Route: 042
     Dates: start: 20220625, end: 20220630
  7. FLUCONAZOLE [Suspect]
     Active Substance: FLUCONAZOLE
     Dosage: 400 MILLIGRAM,(1 FLACON/24 H ? 8H) ONCE A DAY
     Route: 042
     Dates: start: 20220624, end: 20220624
  8. NEORAL [Suspect]
     Active Substance: CYCLOSPORINE
     Indication: Bone marrow transplant rejection
     Dosage: UNK
     Route: 048
     Dates: start: 20220702
  9. NEORAL [Suspect]
     Active Substance: CYCLOSPORINE
     Dosage: 240 MILLIGRAM, (120 MG 8H 20 H)ONCE A DAY
     Route: 048
     Dates: start: 20220620, end: 20220623
  10. PAXLOVID [Interacting]
     Active Substance: NIRMATRELVIR\RITONAVIR
     Indication: COVID-19
     Dosage: 2 DOSAGE FORM, (41 CYCLE MATIN ET SOIR PDT 5 JOURS)ONCE A DAY
     Route: 048
     Dates: start: 20220630, end: 20220705
  11. PIPERACILLIN SODIUM\TAZOBACTAM SODIUM [Suspect]
     Active Substance: PIPERACILLIN SODIUM\TAZOBACTAM SODIUM
     Indication: Febrile bone marrow aplasia
     Dosage: UNK
     Route: 042
     Dates: start: 20220614, end: 20220622
  12. PIPERACILLIN SODIUM\TAZOBACTAM SODIUM [Suspect]
     Active Substance: PIPERACILLIN SODIUM\TAZOBACTAM SODIUM
     Dosage: UNK
     Route: 042
     Dates: start: 20220608, end: 20220614
  13. PIPERACILLIN SODIUM\TAZOBACTAM SODIUM [Suspect]
     Active Substance: PIPERACILLIN SODIUM\TAZOBACTAM SODIUM
     Dosage: 16 GRAM,(4 G  4/JOUR)ONCE A DAY
     Route: 042
     Dates: start: 20220530, end: 20220604
  14. CYCLOSPORINE [Suspect]
     Active Substance: CYCLOSPORINE
     Indication: Prophylaxis against transplant rejection
     Dosage: 212 MILLIGRAM,(105.9 MG 2/JOUR) ONCE A DAY
     Route: 042
     Dates: start: 20220521
  15. CILASTATIN SODIUM\IMIPENEM [Suspect]
     Active Substance: CILASTATIN SODIUM\IMIPENEM
     Indication: Febrile bone marrow aplasia
     Dosage: 3 GRAM, (1 G 3/JOUR)ONCE A DAY
     Route: 042
     Dates: start: 20220624, end: 20220702
  16. FLUCONAZOLE [Suspect]
     Active Substance: FLUCONAZOLE
     Indication: Product used for unknown indication
     Dosage: 400 MILLIGRAM, ONCE A DAY
     Route: 048
     Dates: start: 20220630, end: 20220707
  17. VANCOMYCIN HYDROCHLORIDE [Suspect]
     Active Substance: VANCOMYCIN HYDROCHLORIDE
     Indication: Febrile bone marrow aplasia
     Dosage: 1500 MILLIGRAM (DOSE DE CHARGE : 25MG/KG)
     Route: 042
     Dates: start: 20220614, end: 20220614
  18. VANCOMYCIN HYDROCHLORIDE [Suspect]
     Active Substance: VANCOMYCIN HYDROCHLORIDE
     Dosage: 2600 MILLIGRAM (20 MG/KG TOUTES LES 12 H)
     Route: 042
     Dates: start: 20220614, end: 20220622
  19. ZOVIRAX [Suspect]
     Active Substance: ACYCLOVIR
     Indication: Product used for unknown indication
     Dosage: 500 MILLIGRAM, ONCE A DAY
     Route: 042
     Dates: start: 20220706, end: 20220710
  20. ZOVIRAX [Suspect]
     Active Substance: ACYCLOVIR
     Dosage: 500 MILLIGRAM, ONCE A DAY
     Route: 042
     Dates: start: 20220624, end: 20220630
  21. LINEZOLID [Suspect]
     Active Substance: LINEZOLID
     Indication: Febrile bone marrow aplasia
     Dosage: 1200 MILLIGRAM,(600 MG 2/JOUR) ONCE A DAY
     Route: 048
     Dates: start: 20220610, end: 20220614

REACTIONS (2)
  - Coma [Recovered/Resolved]
  - Confusional state [Not Recovered/Not Resolved]

NARRATIVE: CASE EVENT DATE: 20220628
